FAERS Safety Report 6853006-7 (Version None)
Quarter: 2010Q3

REPORT INFORMATION
  Report Type: 
  Country: None (occurrence: None)
  Receive Date: 20100717
  Receipt Date: 20071128
  Transmission Date: 20110219
  Serious: No
  Sender: FDA-Public Use
  Company Number: US-PFIZER INC-2007101439

PATIENT
  Sex: Male
  Weight: 80 kg

DRUGS (9)
  1. CHANTIX [Suspect]
     Indication: SMOKING CESSATION THERAPY
     Dates: start: 20071101, end: 20071101
  2. CYMBALTA [Concomitant]
  3. LORAZEPAM [Concomitant]
  4. SIMVASTATIN [Concomitant]
  5. IBUPROFEN [Concomitant]
  6. HYDROCODONE [Concomitant]
  7. OXYCODONE HCL [Concomitant]
  8. DOXAZOSIN [Concomitant]
  9. IPRATROPIUM BROMIDE [Concomitant]

REACTIONS (2)
  - INSOMNIA [None]
  - MIDDLE INSOMNIA [None]
